FAERS Safety Report 15535906 (Version 6)
Quarter: 2020Q4

REPORT INFORMATION
  Report Type: Spontaneous
  Country: US (occurrence: US)
  Receive Date: 20181022
  Receipt Date: 20201221
  Transmission Date: 20210113
  Serious: No
  Sender: FDA-Public Use
  Company Number: US-PFIZER INC-2018141871

PATIENT
  Age: 58 Year
  Sex: Female

DRUGS (2)
  1. XELJANZ XR [Suspect]
     Active Substance: TOFACITINIB CITRATE
     Indication: RHEUMATOID ARTHRITIS
     Dosage: 11 MG, DAILY (TAKE 1 TABLET BY MOUTH DAILY)
     Route: 048
     Dates: start: 201605
  2. ISONIAZIDE [Concomitant]
     Active Substance: ISONIAZID
     Dosage: UNK

REACTIONS (7)
  - Tremor [Unknown]
  - Product dose omission issue [Unknown]
  - Pain in extremity [Unknown]
  - Nervousness [Unknown]
  - Arthralgia [Unknown]
  - Vertigo [Unknown]
  - Heart rate increased [Unknown]
